FAERS Safety Report 15158109 (Version 1)
Quarter: 2018Q3

REPORT INFORMATION
  Report Type: Report from Study
  Country: US (occurrence: US)
  Receive Date: 20180718
  Receipt Date: 20180718
  Transmission Date: 20181010
  Serious: Yes (Other)
  Sender: FDA-Public Use
  Company Number: US-MYLANLABS-2018M1050906

PATIENT
  Sex: Female
  Weight: 75 kg

DRUGS (1)
  1. GLATIRAMER [Suspect]
     Active Substance: GLATIRAMER
     Indication: MULTIPLE SCLEROSIS
     Dosage: 40 MG, 3XW
     Route: 058

REACTIONS (5)
  - Gallbladder operation [Unknown]
  - Injection site warmth [Unknown]
  - Weight decreased [Unknown]
  - Injection site pain [Unknown]
  - Injection site swelling [Unknown]
